FAERS Safety Report 15952213 (Version 2)
Quarter: 2020Q3

REPORT INFORMATION
  Report Type: Report from Study
  Country: US (occurrence: US)
  Receive Date: 20190212
  Receipt Date: 20200805
  Transmission Date: 20201102
  Serious: Yes (Hospitalization, Other)
  Sender: FDA-Public Use
  Company Number: US-SA-2019SA038350

PATIENT

DRUGS (2)
  1. SARILUMAB [Suspect]
     Active Substance: SARILUMAB
     Indication: RHEUMATOID ARTHRITIS
     Dosage: UNK UNK, QOW
     Route: 065
     Dates: start: 20181011
  2. SARILUMAB [Suspect]
     Active Substance: SARILUMAB
     Dosage: 200 MG, QOW
     Route: 058

REACTIONS (7)
  - Cellulitis [Recovered/Resolved]
  - Injection site erythema [Unknown]
  - Off label use [Unknown]
  - Giant cell tumour of tendon sheath [Recovered/Resolved]
  - Injection site pruritus [Unknown]
  - C-reactive protein increased [Unknown]
  - Injection site dryness [Unknown]

NARRATIVE: CASE EVENT DATE: 201912
